FAERS Safety Report 9330611 (Version 2)
Quarter: 2013Q3

REPORT INFORMATION
  Report Type: Spontaneous
  Country: JP (occurrence: JP)
  Receive Date: 20130605
  Receipt Date: 20130702
  Transmission Date: 20140515
  Serious: Yes (Hospitalization)
  Sender: FDA-Public Use
  Company Number: PHHY2013JP056353

PATIENT
  Age: 34 Year
  Sex: Male

DRUGS (3)
  1. CERTICAN [Suspect]
     Indication: RENAL TRANSPLANT
     Dosage: 1 MG
     Route: 048
     Dates: start: 20130517, end: 20130531
  2. MEDROL [Concomitant]
     Indication: RENAL TRANSPLANT
     Dosage: UNK
  3. CHEMOTHERAPEUTICS [Concomitant]
     Dosage: UNK UKN, UNK

REACTIONS (4)
  - Renal tubular disorder [Recovered/Resolved]
  - Tubulointerstitial nephritis [Recovered/Resolved]
  - Urine output increased [Unknown]
  - Immunosuppressant drug level decreased [Unknown]
